FAERS Safety Report 8616102-X (Version None)
Quarter: 2012Q3

REPORT INFORMATION
  Report Type: 
  Country: None (occurrence: None)
  Receive Date: 20120823
  Receipt Date: 20120822
  Transmission Date: 20120928
  Serious: No
  Sender: FDA-Public Use
  Company Number: US-ROCHE-1093214

PATIENT
  Sex: Female
  Weight: 68 kg

DRUGS (19)
  1. RANITIDINE [Concomitant]
     Route: 048
  2. PREDNISONE TAB [Concomitant]
     Route: 048
  3. ASPIRIN [Concomitant]
     Route: 048
  4. ALENDRONATE SODIUM [Concomitant]
  5. CHOLECALCIFEROL [Concomitant]
     Dosage: DOSE EQUAL TO 1000-2000 UNITS
     Route: 048
  6. METHOTREXATE [Concomitant]
  7. POLYETHYLENE GLYCOL [Concomitant]
     Dosage: AS NEEDED
     Route: 048
  8. CYANOCOBALAMIN [Concomitant]
     Route: 060
  9. ACTEMRA [Suspect]
     Route: 042
     Dates: start: 20120626, end: 20120717
  10. PREDNISONE TAB [Concomitant]
     Route: 048
  11. OMEPRAZOLE [Concomitant]
     Dosage: AS NEEDED
     Route: 048
  12. OMEGA 3 FATTY ACIDS [Concomitant]
     Route: 048
  13. ACTEMRA [Suspect]
     Indication: RHEUMATOID ARTHRITIS
     Route: 042
     Dates: start: 20120305
  14. ACTEMRA [Suspect]
     Route: 042
     Dates: start: 20120524
  15. FOLIC ACID [Concomitant]
     Route: 048
  16. SERTRALINE HYDROCHLORIDE [Concomitant]
     Route: 048
  17. UBIQUINONE [Concomitant]
     Route: 048
  18. SENNA/DOCUSATE SODIUM [Concomitant]
     Dosage: 8.6-50 MG TABLET AS NEEDED
     Route: 048
  19. ACTEMRA [Suspect]
     Route: 042
     Dates: start: 20120426

REACTIONS (4)
  - DIARRHOEA [None]
  - ABDOMINAL DISTENSION [None]
  - ABDOMINAL PAIN [None]
  - NAUSEA [None]
